FAERS Safety Report 24689776 (Version 1)
Quarter: 2024Q4

REPORT INFORMATION
  Report Type: Report from Study
  Country: US (occurrence: US)
  Receive Date: 20241203
  Receipt Date: 20241203
  Transmission Date: 20250114
  Serious: Yes (Death)
  Sender: ULTRAGENYX PHARMACEUTICAL
  Company Number: US-ULTRAGENYX PHARMACEUTICAL INC.-US-UGX-24-02202

PATIENT
  Age: 0 Year
  Sex: Female

DRUGS (2)
  1. DOJOLVI [Suspect]
     Active Substance: TRIHEPTANOIN
     Indication: Fatty acid oxidation disorder
     Dosage: 6 MILLILITER VIA ENETRAL
     Dates: start: 20241010
  2. DOJOLVI [Suspect]
     Active Substance: TRIHEPTANOIN
     Dosage: 2.5 MILLILITER, 8 TIMES A DAY
     Route: 048
     Dates: start: 202411, end: 20241118

REACTIONS (1)
  - Death [Fatal]

NARRATIVE: CASE EVENT DATE: 20241118
